FAERS Safety Report 15973694 (Version 2)
Quarter: 2019Q1

REPORT INFORMATION
  Report Type: Spontaneous
  Country: US (occurrence: US)
  Receive Date: 20190217
  Receipt Date: 20190219
  Transmission Date: 20190418
  Serious: Yes (Other)
  Sender: FDA-Public Use
  Company Number: US-JNJFOC-20190205958

PATIENT
  Sex: Female
  Weight: 104.33 kg

DRUGS (1)
  1. LISTERINE TOTAL CARE ANTICAVITY - FRESH MINT [Suspect]
     Active Substance: SODIUM FLUORIDE
     Indication: DENTAL DISORDER PROPHYLAXIS
     Dosage: .5 TO .75 CAPFUL ONCE
     Route: 048
     Dates: start: 20190203, end: 20190203

REACTIONS (5)
  - Expired product administered [Unknown]
  - Abdominal discomfort [Recovered/Resolved]
  - Choking [Recovered/Resolved]
  - Accidental exposure to product [Unknown]
  - Dyspepsia [Recovering/Resolving]

NARRATIVE: CASE EVENT DATE: 20190203
